FAERS Safety Report 11927171 (Version 1)
Quarter: 2016Q1

REPORT INFORMATION
  Report Type: Spontaneous
  Country: CN (occurrence: CN)
  Receive Date: 20160119
  Receipt Date: 20160119
  Transmission Date: 20160526
  Serious: Yes (Other)
  Sender: FDA-Public Use
  Company Number: PHHY2016CN003725

PATIENT
  Age: 74 Year
  Sex: Female

DRUGS (1)
  1. ZOLEDRONIC ACID [Suspect]
     Active Substance: ZOLEDRONIC ACID
     Indication: OSTEOPOROSIS
     Dosage: 100 ML, ONE TIME EVERY 30 DAYS (AS REPORTED)
     Route: 041
     Dates: start: 20150814

REACTIONS (11)
  - Abdominal pain [Recovering/Resolving]
  - Psychopathic personality [Recovering/Resolving]
  - Urine output decreased [Recovering/Resolving]
  - Chest pain [Recovering/Resolving]
  - Myocardial ischaemia [Recovering/Resolving]
  - Vomiting [Recovering/Resolving]
  - Chest discomfort [Recovering/Resolving]
  - Affect lability [Recovering/Resolving]
  - Pain [Recovering/Resolving]
  - Abdominal distension [Recovering/Resolving]
  - Discomfort [Recovering/Resolving]

NARRATIVE: CASE EVENT DATE: 20150814
